FAERS Safety Report 8978851 (Version 1)
Quarter: 2012Q4

REPORT INFORMATION
  Report Type: 
  Country: GB (occurrence: GB)
  Receive Date: 20121221
  Receipt Date: 20121221
  Transmission Date: 20130627
  Serious: Yes (Death)
  Sender: FDA-Public Use
  Company Number: GB-SAVIENT-2012S1000124

PATIENT
  Age: 46 Year
  Sex: Female

DRUGS (4)
  1. KRYSTEXXA [Suspect]
     Indication: DRUG USE FOR UNKNOWN INDICATION
     Route: 042
  2. KRYSTEXXA [Suspect]
     Indication: DRUG USE FOR UNKNOWN INDICATION
     Route: 042
  3. KRYSTEXXA [Suspect]
     Indication: DRUG USE FOR UNKNOWN INDICATION
     Route: 042
  4. KRYSTEXXA [Suspect]
     Indication: DRUG USE FOR UNKNOWN INDICATION
     Route: 042

REACTIONS (1)
  - Sudden death [Fatal]
